FAERS Safety Report 13553240 (Version 1)
Quarter: 2017Q2

REPORT INFORMATION
  Report Type: Spontaneous
  Country: US (occurrence: US)
  Receive Date: 20170517
  Receipt Date: 20170517
  Transmission Date: 20170830
  Serious: Yes (Life-Threatening, Other)
  Sender: FDA-Public Use
  Company Number: US-ACCORD-051410

PATIENT
  Age: 37 Year
  Sex: Female

DRUGS (13)
  1. CISPLATIN. [Suspect]
     Active Substance: CISPLATIN
     Indication: CHORIOCARCINOMA
  2. BLEOMYCIN [Concomitant]
     Active Substance: BLEOMYCIN SULFATE
  3. CISPLATIN. [Suspect]
     Active Substance: CISPLATIN
  4. BLEOMYCIN [Concomitant]
     Active Substance: BLEOMYCIN SULFATE
     Indication: CHORIOCARCINOMA
  5. CISPLATIN. [Suspect]
     Active Substance: CISPLATIN
  6. PACLITAXEL/PACLITAXEL LIPOSOME [Concomitant]
     Indication: CHORIOCARCINOMA
  7. IFOSFAMIDE. [Concomitant]
     Active Substance: IFOSFAMIDE
     Indication: CHORIOCARCINOMA
  8. MESNA. [Concomitant]
     Active Substance: MESNA
     Indication: CHORIOCARCINOMA
  9. MESNA. [Concomitant]
     Active Substance: MESNA
  10. ETOPOSIDE. [Concomitant]
     Active Substance: ETOPOSIDE
     Indication: CHORIOCARCINOMA
  11. CISPLATIN. [Suspect]
     Active Substance: CISPLATIN
  12. ETOPOSIDE. [Concomitant]
     Active Substance: ETOPOSIDE
  13. IFOSFAMIDE. [Concomitant]
     Active Substance: IFOSFAMIDE

REACTIONS (4)
  - Off label use [Unknown]
  - Renal tubular necrosis [Unknown]
  - Acute kidney injury [Unknown]
  - Febrile neutropenia [Unknown]
